FAERS Safety Report 8113418-0 (Version None)
Quarter: 2012Q1

REPORT INFORMATION
  Report Type: 
  Country: None (occurrence: None)
  Receive Date: 20120203
  Receipt Date: 20120201
  Transmission Date: 20120608
  Serious: Yes (Death, Hospitalization, Other)
  Sender: FDA-Public Use
  Company Number: PHHY2011NL47152

PATIENT
  Sex: Female

DRUGS (14)
  1. ZOMETA [Suspect]
     Dosage: 4 MG/5 ML 1X PER 28 DAYS
     Route: 042
     Dates: start: 20111111
  2. ZOMETA [Suspect]
     Dosage: 4 MG/5 ML 1X PER 28 DAYS
     Route: 042
     Dates: start: 20111017
  3. FEMARA [Concomitant]
  4. ANALGESICS [Concomitant]
  5. ACETAMINOPHEN [Concomitant]
  6. ZOMETA [Suspect]
     Dosage: 4 MG/5 ML 1X PER 28 DAYS
     Route: 042
     Dates: start: 20110919
  7. ZOMETA [Suspect]
     Indication: BREAST CANCER METASTATIC
     Dosage: 4 MG/5 ML 1X PER 28 DAYS
     Route: 042
     Dates: start: 20110502
  8. ZOMETA [Suspect]
     Dosage: 4 MG/5 ML 1X PER 28 DAYS
     Route: 042
     Dates: start: 20111209
  9. NEXIUM [Concomitant]
  10. TRAMADOL HCL [Concomitant]
  11. ENOXAPARIN SODIUM [Concomitant]
  12. ZOMETA [Suspect]
     Dosage: 4 MG/5 ML 1X PER 28 DAYS
     Route: 042
     Dates: start: 20110818
  13. ZOMETA [Suspect]
     Dosage: 4 MG/5 ML 1X PER 28 DAYS
     Route: 042
     Dates: start: 20120106
  14. XELODA [Concomitant]

REACTIONS (7)
  - PNEUMONIA [None]
  - PLEURAL EFFUSION [None]
  - DEATH [None]
  - PERICARDIAL EFFUSION [None]
  - MUSCULOSKELETAL CHEST PAIN [None]
  - METASTASES TO PLEURA [None]
  - DYSPNOEA [None]
